FAERS Safety Report 5127554-4 (Version None)
Quarter: 2006Q4

REPORT INFORMATION
  Report Type: 
  Country: None (occurrence: None)
  Receive Date: 20061016
  Receipt Date: 20061002
  Transmission Date: 20070319
  Serious: Yes (Other)
  Sender: FDA-Public Use
  Company Number: US-JNJFOC-20061000816

PATIENT
  Sex: Female

DRUGS (6)
  1. REMICADE [Suspect]
     Route: 042
  2. REMICADE [Suspect]
     Indication: RHEUMATOID ARTHRITIS
     Route: 042
  3. VIOXX [Concomitant]
  4. PREDNISONE TAB [Concomitant]
  5. METHOTREXATE [Concomitant]
  6. ANTIBIOTICS [Concomitant]

REACTIONS (1)
  - HODGKIN'S DISEASE [None]
